FAERS Safety Report 20809097 (Version 13)
Quarter: 2023Q1

REPORT INFORMATION
  Report Type: Spontaneous
  Country: IT (occurrence: IT)
  Receive Date: 20220510
  Receipt Date: 20230216
  Transmission Date: 20230418
  Serious: Yes (Hospitalization, Other)
  Sender: FDA-Public Use
  Company Number: IT-TAKEDA-2022TEU003068

PATIENT
  Age: 93 Year
  Sex: Female
  Weight: 60 kg

DRUGS (15)
  1. PANTOPRAZOLE [Suspect]
     Active Substance: PANTOPRAZOLE
     Indication: Prophylaxis
     Dosage: 40 MG, 1X/DAY
  2. AMLODIPINE BESYLATE [Interacting]
     Active Substance: AMLODIPINE BESYLATE
     Indication: Hypertension
     Dosage: 10 MG, DAILY
  3. ASPIRIN [Interacting]
     Active Substance: ASPIRIN
     Indication: Hypertension
     Dosage: 30 MG, DAILY
  4. ASPIRIN [Interacting]
     Active Substance: ASPIRIN
     Dosage: 100 MG, 1X/DAY
  5. CLOPIDOGREL [Suspect]
     Active Substance: CLOPIDOGREL BISULFATE
     Dosage: 75 MG, 1X/DAY
  6. SIMVASTATIN [Suspect]
     Active Substance: SIMVASTATIN
     Indication: Hypertension
     Dosage: 20 MG, ALTERNATE DAY
  7. SIMVASTATIN [Suspect]
     Active Substance: SIMVASTATIN
     Dosage: 40 MILLIGRAM, QD
     Route: 065
  8. SIMVASTATIN [Suspect]
     Active Substance: SIMVASTATIN
     Dosage: 20 MILLIGRAM, QOD
     Route: 048
  9. SIMVASTATIN [Suspect]
     Active Substance: SIMVASTATIN
     Dosage: 20 MG, 2X/WEEK
     Route: 048
  10. METOPROLOL [Concomitant]
     Active Substance: METOPROLOL
     Indication: Diuretic therapy
     Dosage: 25 MG, DAILY
  11. METOPROLOL [Concomitant]
     Active Substance: METOPROLOL
     Dosage: 100 MG, DAILY
     Route: 065
  12. METOPROLOL [Concomitant]
     Active Substance: METOPROLOL
     Dosage: 50 MG, DAILY
  13. LOSARTAN [Concomitant]
     Active Substance: LOSARTAN
     Indication: Hypertension
     Dosage: UNK, DAILY (50 1/2 CP, DAILY)
     Route: 048
  14. LEVOTHYROXINE SODIUM [Concomitant]
     Active Substance: LEVOTHYROXINE SODIUM
     Indication: Hypertension
     Dosage: UNK (75 1 CP)
  15. ISOSORBIDE MONONITRATE [Concomitant]
     Active Substance: ISOSORBIDE MONONITRATE
     Dosage: 20 MG, 2X/DAY

REACTIONS (13)
  - Drug interaction [Recovering/Resolving]
  - Glomerular filtration rate decreased [Recovering/Resolving]
  - Nephropathy toxic [Recovering/Resolving]
  - Mitral valve incompetence [Recovering/Resolving]
  - Cardiac failure acute [Recovering/Resolving]
  - Pulmonary oedema [Recovering/Resolving]
  - Cardiorenal syndrome [Recovering/Resolving]
  - Toxicity to various agents [Recovering/Resolving]
  - Proteinuria [Unknown]
  - Condition aggravated [Recovering/Resolving]
  - Sodium retention [Recovering/Resolving]
  - Exfoliative rash [Recovered/Resolved]
  - Off label use [Unknown]
